FAERS Safety Report 7380383-3 (Version None)
Quarter: 2011Q1

REPORT INFORMATION
  Report Type: 
  Country: None (occurrence: None)
  Receive Date: 20110329
  Receipt Date: 20110324
  Transmission Date: 20110831
  Serious: No
  Sender: FDA-Public Use
  Company Number: IT-ROCHE-764756

PATIENT
  Sex: Female

DRUGS (1)
  1. VALIUM [Suspect]
     Dosage: FREQUENCY: TOTAL, ROUTE: OS INTENTIONAL OVERDOSE.
     Route: 048
     Dates: start: 20110308, end: 20110308

REACTIONS (2)
  - BRADYPHRENIA [None]
  - BRADYKINESIA [None]
